FAERS Safety Report 19652852 (Version 1)
Quarter: 2021Q3

REPORT INFORMATION
  Report Type: Spontaneous
  Country: FR (occurrence: FR)
  Receive Date: 20210803
  Receipt Date: 20210803
  Transmission Date: 20211014
  Serious: Yes (Other)
  Sender: FDA-Public Use
  Company Number: FR-MYLANLABS-2021M1047332

PATIENT
  Age: 73 Year
  Sex: Female

DRUGS (9)
  1. METFORMIN [Concomitant]
     Active Substance: METFORMIN HYDROCHLORIDE
     Indication: DIABETES MELLITUS
     Dosage: UNK
  2. DARATUMUMAB [Concomitant]
     Active Substance: DARATUMUMAB
     Indication: PLASMA CELL MYELOMA
     Dosage: SECOND?LINE
  3. LENALIDOMIDE [Concomitant]
     Active Substance: LENALIDOMIDE
     Indication: PLASMA CELL MYELOMA
     Dosage: 15MG DAILY FOR 21 DAYS OF A 28?DAY CYCLE
  4. DEXAMETHASONE. [Suspect]
     Active Substance: DEXAMETHASONE
     Indication: PLASMA CELL MYELOMA
     Dosage: LOW DOSE (40 MG WEEKLY REDUCED TO 20 MG WEEKLY IF NEEDED)
     Route: 042
  5. DEXAMETHASONE. [Suspect]
     Active Substance: DEXAMETHASONE
     Indication: PLASMA CELL MYELOMA
     Dosage: LOW DOSE (40 MG WEEKLY REDUCED TO 20 MG WEEKLY IF NEEDED)
     Route: 048
  6. LEVOTHYROXINE. [Concomitant]
     Active Substance: LEVOTHYROXINE
     Indication: HYPOTHYROIDISM
     Dosage: UNK
  7. POMALIDOMIDE [Concomitant]
     Active Substance: POMALIDOMIDE
     Indication: PLASMA CELL MYELOMA
     Dosage: SECOND?LINE
  8. LENALIDOMIDE [Concomitant]
     Active Substance: LENALIDOMIDE
     Dosage: EVERY OTHER DAY FOR 21 DAYS (DUE TO HER RENAL IMPAIRMENT)
     Route: 048
  9. BORTEZOMIB. [Concomitant]
     Active Substance: BORTEZOMIB
     Indication: PLASMA CELL MYELOMA
     Dosage: ON DAYS 1, 8, 15 AND 22
     Route: 058

REACTIONS (1)
  - Neuropathy peripheral [Unknown]
